FAERS Safety Report 10548158 (Version 2)
Quarter: 2014Q4

REPORT INFORMATION
  Report Type: Spontaneous
  Country: FR (occurrence: FR)
  Receive Date: 20141028
  Receipt Date: 20141201
  Transmission Date: 20150529
  Serious: Yes (Death)
  Sender: FDA-Public Use
  Company Number: FR-PFIZER INC-2014294280

PATIENT
  Age: 91 Year
  Sex: Male

DRUGS (12)
  1. PERFALGAN [Suspect]
     Active Substance: ACETAMINOPHEN
     Indication: PAIN
     Dosage: 1 DF, 3X/DAY
     Route: 042
     Dates: start: 20140718, end: 20140721
  2. ATROVENT [Suspect]
     Active Substance: IPRATROPIUM BROMIDE
     Dosage: UNK
     Route: 055
     Dates: start: 20140718, end: 20140722
  3. ROCEPHINE [Suspect]
     Active Substance: CEFTRIAXONE SODIUM
     Indication: LUNG DISORDER
     Dosage: 1 G, 1X/DAY
     Route: 042
     Dates: start: 20140719, end: 20140726
  4. VITAMIN K1 [Concomitant]
     Active Substance: PHYTONADIONE
     Dosage: UNK, SINGLE
     Dates: start: 20140718, end: 20140718
  5. SCOBUREN [Concomitant]
     Dosage: UNK
     Dates: start: 20140718, end: 20140719
  6. SOLU-MEDROL [Suspect]
     Active Substance: METHYLPREDNISOLONE SODIUM SUCCINATE
     Indication: PAIN
     Dosage: 120 MG, 1X/DAY
     Route: 042
     Dates: start: 20140718, end: 20140726
  7. OFLOCET [Suspect]
     Active Substance: OFLOXACIN
     Dosage: 1 DF, 1X/DAY
     Route: 042
     Dates: start: 20140718, end: 20140726
  8. BRICANYL [Suspect]
     Active Substance: TERBUTALINE SULFATE
     Dosage: UNK
     Route: 055
     Dates: start: 20140718, end: 20140722
  9. ENANTONE LP [Suspect]
     Active Substance: LEUPROLIDE ACETATE
     Indication: PROSTATE CANCER METASTATIC
     Dosage: 1 DF (3.75 MG ), CYCLIC (EVERY 6 MONTHS)
     Route: 058
     Dates: start: 201004, end: 2014
  10. MORPHINE HYDROCHLORIDE [Suspect]
     Active Substance: MORPHINE HYDROCHLORIDE
     Indication: PAIN
     Dosage: 5 MG, 1X/DAY
     Route: 042
     Dates: start: 20140718, end: 20140721
  11. HYPNOVEL [Suspect]
     Active Substance: MIDAZOLAM\MIDAZOLAM HYDROCHLORIDE
     Dosage: UNK
     Route: 042
     Dates: start: 20140720, end: 20140726
  12. LASILIX [Concomitant]
     Active Substance: FUROSEMIDE
     Dosage: UNK, SINGLE
     Dates: start: 20140718, end: 20140718

REACTIONS (3)
  - Acute hepatic failure [Fatal]
  - Hepatocellular injury [Fatal]
  - Cholestasis [Fatal]

NARRATIVE: CASE EVENT DATE: 20140721
